FAERS Safety Report 8317877-X (Version None)
Quarter: 2012Q2

REPORT INFORMATION
  Report Type: 
  Country: None (occurrence: None)
  Receive Date: 20120427
  Receipt Date: 20120420
  Transmission Date: 20120825
  Serious: Yes (Hospitalization)
  Sender: FDA-Public Use
  Company Number: FR-SANOFI-AVENTIS-2012SA027622

PATIENT
  Age: 71 Year
  Sex: Male

DRUGS (10)
  1. LISINOPRIL [Concomitant]
     Route: 048
  2. LERCANIDIPINE [Concomitant]
     Dosage: STRENGTH; 10 MG
     Route: 048
  3. TAMSULOSIN HCL [Concomitant]
     Dosage: STRENGTH; 0.4 MG
     Route: 048
  4. LEVOFLOXACIN [Concomitant]
     Dosage: STRENGTH; 500 MG
     Route: 048
     Dates: start: 20110908
  5. RIFADIN [Suspect]
     Route: 065
     Dates: start: 20110908, end: 20110915
  6. LEXOMIL [Concomitant]
     Dosage: DOSE; 0.5 DF DAILY + 0.25 DF AS NEEDED
     Route: 048
  7. GLUCOPHAGE [Concomitant]
     Route: 048
  8. OXACILLIN [Concomitant]
     Indication: BACTERIAL INFECTION
     Route: 042
     Dates: start: 20110831, end: 20110908
  9. ZOLPIDEM TARTRATE [Concomitant]
     Route: 048
  10. ALLOPURINOL [Concomitant]
     Route: 048

REACTIONS (2)
  - CYTOLYTIC HEPATITIS [None]
  - PANCREATITIS [None]
